FAERS Safety Report 5235642-7 (Version None)
Quarter: 2007Q1

REPORT INFORMATION
  Report Type: 
  Country: None (occurrence: None)
  Receive Date: 20070212
  Receipt Date: 20070206
  Transmission Date: 20070707
  Serious: Yes (Hospitalization)
  Sender: FDA-Public Use
  Company Number: US-GLAXOSMITHKLINE-A0638283A

PATIENT
  Age: 76 Year
  Sex: Female

DRUGS (4)
  1. BEANO TABLETS [Suspect]
     Dates: start: 20070122, end: 20070204
  2. NORVASC [Concomitant]
  3. LIPITOR [Concomitant]
  4. TOPROL-XL [Concomitant]

REACTIONS (5)
  - ABDOMINAL PAIN UPPER [None]
  - DYSPEPSIA [None]
  - GASTROINTESTINAL PAIN [None]
  - NONSPECIFIC REACTION [None]
  - STOMACH DISCOMFORT [None]
